FAERS Safety Report 11105750 (Version 1)
Quarter: 2015Q2

REPORT INFORMATION
  Report Type: Spontaneous
  Country: US (occurrence: None)
  Receive Date: 20150508
  Receipt Date: 20150508
  Transmission Date: 20150821
  Serious: Yes (Hospitalization, Other)
  Sender: FDA-Public Use
  Company Number: US-ZYDUS-007932

PATIENT
  Age: 53 Year
  Sex: Male

DRUGS (1)
  1. LEVOFLOXACINE (LEVOFLOXACIN) [Suspect]
     Active Substance: LEVOFLOXACIN
     Indication: BRONCHITIS

REACTIONS (1)
  - Eosinophilic myocarditis [None]
